FAERS Safety Report 20123870 (Version 4)
Quarter: 2021Q4

REPORT INFORMATION
  Report Type: Other
  Country: CA (occurrence: None)
  Receive Date: 20211129
  Receipt Date: 20211210
  Transmission Date: 20220303
  Serious: Yes (Other)
  Sender: FDA-Public Use
  Company Number: CA-ROCHE-2961531

PATIENT
  Age: 24 Year
  Sex: Female
  Weight: 58.566 kg

DRUGS (5)
  1. OCREVUS [Suspect]
     Active Substance: OCRELIZUMAB
     Indication: Relapsing-remitting multiple sclerosis
     Dosage: THEN 600 MG EVERY 6 MONTH
     Route: 042
     Dates: start: 20210421
  2. FUCIDIN [Concomitant]
     Active Substance: FUSIDATE SODIUM
     Dosage: MORE DOSAGE INFORMATION IS NOT PROVIDED
  3. CEPHALEXIN [Concomitant]
     Active Substance: CEPHALEXIN
     Dates: start: 20211117
  4. POLYSPORIN CREAM [Concomitant]
  5. TRINTELLIX [Concomitant]
     Active Substance: VORTIOXETINE HYDROBROMIDE

REACTIONS (1)
  - Cellulitis [Recovered/Resolved]

NARRATIVE: CASE EVENT DATE: 20211113
